FAERS Safety Report 6877015-7 (Version None)
Quarter: 2010Q3

REPORT INFORMATION
  Report Type: 
  Country: None (occurrence: None)
  Receive Date: 20100727
  Receipt Date: 20100727
  Transmission Date: 20110219
  Serious: Yes (Other)
  Sender: FDA-Public Use
  Company Number: None

PATIENT
  Sex: Female
  Weight: 68.0396 kg

DRUGS (4)
  1. TRAMADOL HCL [Suspect]
     Indication: ANALGESIC THERAPY
     Dosage: ONE TABLET AS NEEDED FOR PAIN PO 6 TO 8 WEEKS
     Route: 048
  2. TRAMADOL HCL [Suspect]
     Indication: FRACTURE
     Dosage: ONE TABLET AS NEEDED FOR PAIN PO 6 TO 8 WEEKS
     Route: 048
  3. HYDROCODONE BITARTRATE + ACETAMINOPHEN [Suspect]
     Indication: ANALGESIC THERAPY
     Dosage: ONE TABLET AS NEEDED FOR PAIN PO
     Route: 048
     Dates: start: 20100203, end: 20100330
  4. HYDROCODONE BITARTRATE + ACETAMINOPHEN [Suspect]
     Indication: FRACTURE
     Dosage: ONE TABLET AS NEEDED FOR PAIN PO
     Route: 048
     Dates: start: 20100203, end: 20100330

REACTIONS (3)
  - ASTHENIA [None]
  - FALL [None]
  - TREMOR [None]
